FAERS Safety Report 5617261-3 (Version None)
Quarter: 2008Q1

REPORT INFORMATION
  Report Type: 
  Country: None (occurrence: None)
  Receive Date: 20080207
  Receipt Date: 20070612
  Transmission Date: 20080703
  Serious: No
  Sender: FDA-Public Use
  Company Number: A0655275A

PATIENT
  Age: 26 Year
  Sex: Female

DRUGS (9)
  1. PAXIL [Suspect]
     Indication: ANXIETY DISORDER
     Dosage: 100MG PER DAY
     Route: 048
     Dates: end: 20070603
  2. ZOFRAN [Suspect]
     Route: 042
  3. GABAPENTIN [Concomitant]
  4. VYTORIN [Concomitant]
  5. PIROXICAM [Concomitant]
  6. FUROSEMIDE [Concomitant]
  7. RISPERDAL [Concomitant]
  8. AVANDAMET [Concomitant]
  9. METOPROLOL TARTRATE [Concomitant]

REACTIONS (2)
  - ANXIETY [None]
  - PALPITATIONS [None]
